FAERS Safety Report 9747268 (Version 7)
Quarter: 2014Q2

REPORT INFORMATION
  Report Type: Spontaneous
  Country: BE (occurrence: BE)
  Receive Date: 20131212
  Receipt Date: 20140401
  Transmission Date: 20141212
  Serious: Yes (Hospitalization)
  Sender: FDA-Public Use
  Company Number: BE-009507513-1312BEL004811

PATIENT
  Age: 61 Year
  Sex: Female

DRUGS (14)
  1. PEGINTRON [Suspect]
     Indication: HEPATITIS C
     Dosage: 100 MICROGRAM, QW
     Dates: start: 20131205, end: 20140123
  2. REBETOL [Suspect]
     Indication: HEPATITIS C
     Dosage: TOTAL DAILY DOSE 1000 MG
     Route: 048
     Dates: start: 20131205, end: 201401
  3. PANTOMED (PANTOPRAZOLE SODIUM) [Concomitant]
     Indication: ABDOMINAL PAIN UPPER
     Dosage: 40 MG, BID
     Route: 048
  4. NORVIR [Concomitant]
     Indication: HIV INFECTION
     Dosage: 100 MG, QD
     Route: 048
     Dates: start: 20140106
  5. KIVEXA [Concomitant]
     Indication: HIV INFECTION
     Dosage: 600/300 MG 1X/DAY
     Route: 048
     Dates: start: 20140106
  6. PREZISTA [Concomitant]
     Indication: HIV INFECTION
     Dosage: 800 MG, QD
     Route: 048
     Dates: start: 20140106
  7. COVERAM [Concomitant]
     Indication: HYPERTENSION
     Dosage: 10/5 MG 1X/DAY
     Route: 048
  8. REDOMEX [Concomitant]
     Indication: BACK PAIN
     Dosage: 25 MG, QD
     Route: 048
  9. SERETIDE [Concomitant]
     Indication: ASTHMA
     Dosage: 50/500, 2X2 PUFF/DAY
     Route: 055
  10. CALCIUM CARBONATE [Concomitant]
     Indication: OSTEOPOROSIS POSTMENOPAUSAL
     Dosage: 1 G, QD
     Route: 048
  11. DIFLUCAN [Concomitant]
     Indication: FUNGAL OESOPHAGITIS
     Dosage: 200 MG, QD
     Route: 048
     Dates: end: 20140122
  12. DUROGESIC [Concomitant]
     Indication: BACK PAIN
     Dosage: 75, 1PATCH/72 HOURS
     Route: 062
  13. OXYNORM [Concomitant]
     Indication: BACK PAIN
     Dosage: 10 MG, 4X/DAY IF NECESSARY
     Route: 048
  14. LAXOBERON [Concomitant]
     Indication: CONSTIPATION
     Dosage: 15 DROPS, 1X/DAY

REACTIONS (10)
  - Hypoxia [Recovered/Resolved]
  - Pneumonia [Recovered/Resolved]
  - Vomiting [Not Recovered/Not Resolved]
  - Normochromic normocytic anaemia [Unknown]
  - Muscle haemorrhage [Unknown]
  - Oesophagitis haemorrhagic [Unknown]
  - Supraventricular tachycardia [Unknown]
  - Malaise [Unknown]
  - Fall [Unknown]
  - Transfusion [Unknown]
